FAERS Safety Report 4835438-1 (Version None)
Quarter: 2005Q4

REPORT INFORMATION
  Report Type: 
  Country: None (occurrence: None)
  Receive Date: 20051122
  Receipt Date: 20051122
  Transmission Date: 20060501
  Serious: Yes (Hospitalization)
  Sender: FDA-Public Use
  Company Number: None

PATIENT
  Sex: Male
  Weight: 95 kg

DRUGS (1)
  1. ZARNESTRA 600 MG [Suspect]
     Indication: ACUTE MYELOID LEUKAEMIA
     Dosage: 600 MG BID PO
     Route: 048
     Dates: start: 20051107, end: 20051110

REACTIONS (3)
  - CONFUSIONAL STATE [None]
  - NEUTROPENIA [None]
  - PYREXIA [None]
